FAERS Safety Report 23822426 (Version 1)
Quarter: 2024Q2

REPORT INFORMATION
  Report Type: Spontaneous
  Country: US (occurrence: None)
  Receive Date: 20240504
  Receipt Date: 20240504
  Transmission Date: 20240716
  Serious: Yes (Life-Threatening, Hospitalization)
  Sender: FDA-Public Use
  Company Number: None

PATIENT
  Age: 77 Year
  Sex: Male
  Weight: 95.7 kg

DRUGS (1)
  1. RIVASTIGMINE [Suspect]
     Active Substance: RIVASTIGMINE
     Indication: Dementia
     Dosage: 9.5 MG EVERY DAY TOP
     Route: 061
     Dates: start: 20230227, end: 20230918

REACTIONS (5)
  - Atrioventricular block [None]
  - Palpitations [None]
  - Delusion [None]
  - Hallucination [None]
  - Condition aggravated [None]

NARRATIVE: CASE EVENT DATE: 20230918
